FAERS Safety Report 4497909-X (Version None)
Quarter: 2004Q4

REPORT INFORMATION
  Report Type: 
  Country: None (occurrence: None)
  Receive Date: 20041104
  Receipt Date: 20041021
  Transmission Date: 20050328
  Serious: Yes (Life-Threatening, Hospitalization, Disabling)
  Sender: FDA-Public Use
  Company Number: 2004241116DE

PATIENT
  Sex: Male

DRUGS (1)
  1. SOMAVERT [Suspect]
     Indication: ACROMEGALY
     Dosage: 30 MG, QD, SUBCUTANEOUS
     Route: 058
     Dates: start: 20030827

REACTIONS (1)
  - LUNG NEOPLASM MALIGNANT [None]
